FAERS Safety Report 23848158 (Version 1)
Quarter: 2024Q2

REPORT INFORMATION
  Report Type: Spontaneous
  Country: US (occurrence: None)
  Receive Date: 20240510
  Receipt Date: 20240510
  Transmission Date: 20240716
  Serious: Yes (Death)
  Sender: FDA-Public Use
  Company Number: None

PATIENT
  Age: 88 Year
  Sex: Male
  Weight: 53 kg

DRUGS (11)
  1. RINVOQ [Suspect]
     Active Substance: UPADACITINIB
     Indication: Dermatitis atopic
     Dosage: FREQUENCY : DAILY;?
     Route: 048
     Dates: start: 20230609, end: 20231205
  2. LISINOPRIL [Concomitant]
     Active Substance: LISINOPRIL
  3. PLAVIX [Concomitant]
     Active Substance: CLOPIDOGREL BISULFATE
  4. PROTONIX [Concomitant]
     Active Substance: PANTOPRAZOLE SODIUM
  5. DICLOFENAC [Concomitant]
     Active Substance: DICLOFENAC
  6. AUGMENTIN [Concomitant]
     Active Substance: AMOXICILLIN\CLAVULANATE POTASSIUM
  7. VALTREX [Concomitant]
     Active Substance: VALACYCLOVIR HYDROCHLORIDE
  8. VIGAMAX [Concomitant]
  9. LOPRESSOR [Concomitant]
     Active Substance: METOPROLOL TARTRATE
  10. LIPITOR [Concomitant]
     Active Substance: ATORVASTATIN CALCIUM
  11. ZETIA [Concomitant]
     Active Substance: EZETIMIBE

REACTIONS (1)
  - Death [None]

NARRATIVE: CASE EVENT DATE: 20240508
